FAERS Safety Report 10028981 (Version 1)
Quarter: 2014Q1

REPORT INFORMATION
  Report Type: Spontaneous
  Country: NO (occurrence: NO)
  Receive Date: 20140321
  Receipt Date: 20140321
  Transmission Date: 20141002
  Serious: Yes (Other)
  Sender: FDA-Public Use
  Company Number: PHHY2014NO033725

PATIENT
  Age: 53 Year
  Sex: Female

DRUGS (1)
  1. ESIDREX [Suspect]
     Indication: HYPERTENSION
     Dosage: 25 MG QD
     Route: 048
     Dates: start: 201206, end: 20140126

REACTIONS (1)
  - Pancreatitis [Recovered/Resolved]
